FAERS Safety Report 5006603-8 (Version None)
Quarter: 2006Q2

REPORT INFORMATION
  Report Type: 
  Country: None (occurrence: None)
  Receive Date: 20060519
  Receipt Date: 20010508
  Transmission Date: 20061013
  Serious: Yes (Death)
  Sender: FDA-Public Use
  Company Number: GB-GLAXOSMITHKLINE-B0107035A

PATIENT
  Age: 18 Year
  Sex: Male
  Weight: 74 kg

DRUGS (2)
  1. ZYBAN [Suspect]
     Indication: SMOKING CESSATION THERAPY
     Route: 048
     Dates: start: 20001116, end: 20001206
  2. CHLOROQUINE PHOSPHATE [Concomitant]
     Indication: PROPHYLAXIS
     Dosage: 37.5MG PER DAY
     Dates: end: 20001101

REACTIONS (31)
  - AGGRESSION [None]
  - ALCOHOLISM [None]
  - ANOREXIA [None]
  - ANXIETY [None]
  - ASTHENIA [None]
  - CARDIAC DISORDER [None]
  - CHEST PAIN [None]
  - COMPLETED SUICIDE [None]
  - DEPERSONALISATION [None]
  - DEPRESSION [None]
  - DEREALISATION [None]
  - DISSOCIATION [None]
  - DISTURBANCE IN ATTENTION [None]
  - DIZZINESS [None]
  - DRUG ABUSER [None]
  - DRY MOUTH [None]
  - FEELING ABNORMAL [None]
  - FEELING OF DESPAIR [None]
  - HEAD INJURY [None]
  - HEADACHE [None]
  - HYPOCHONDRIASIS [None]
  - IRRITABILITY [None]
  - MANIA [None]
  - MENTAL DISORDER [None]
  - MOOD SWINGS [None]
  - PALPITATIONS [None]
  - PERSONALITY CHANGE [None]
  - PSYCHIATRIC SYMPTOM [None]
  - RESTLESSNESS [None]
  - SOCIAL AVOIDANT BEHAVIOUR [None]
  - VISION BLURRED [None]
